FAERS Safety Report 23735149 (Version 1)
Quarter: 2024Q2

REPORT INFORMATION
  Report Type: Spontaneous
  Country: RU (occurrence: RU)
  Receive Date: 20240412
  Receipt Date: 20240412
  Transmission Date: 20240716
  Serious: Yes (Other)
  Sender: FDA-Public Use
  Company Number: RU-TEVA-VS-3150626

PATIENT
  Age: 4 Decade
  Sex: Male

DRUGS (1)
  1. AJOVY [Suspect]
     Active Substance: FREMANEZUMAB-VFRM
     Indication: Migraine without aura
     Route: 065
     Dates: start: 20230925

REACTIONS (2)
  - Haemorrhagic vasculitis [Unknown]
  - Arthritis [Unknown]

NARRATIVE: CASE EVENT DATE: 20231001
